FAERS Safety Report 13700218 (Version 1)
Quarter: 2017Q2

REPORT INFORMATION
  Report Type: Spontaneous
  Country: US (occurrence: US)
  Receive Date: 20170628
  Receipt Date: 20170628
  Transmission Date: 20170830
  Serious: No
  Sender: FDA-Public Use
  Company Number: None

PATIENT
  Sex: Female

DRUGS (1)
  1. TALTZ [Suspect]
     Active Substance: IXEKIZUMAB
     Indication: PRODUCT USED FOR UNKNOWN INDICATION
     Dosage: 80 MG 160 MG) SUBCUTANEOUSLY AT WEEK 0, THEN ONE PEN (80 MG) AT WEEKS 2, 4, 6, 8, 10, AND 12 SQ
     Route: 058
     Dates: start: 20170604

REACTIONS (1)
  - Hyperhidrosis [None]
